FAERS Safety Report 11364902 (Version 1)
Quarter: 2015Q3

REPORT INFORMATION
  Report Type: Spontaneous
  Country: PT (occurrence: PT)
  Receive Date: 20150811
  Receipt Date: 20150811
  Transmission Date: 20151125
  Serious: Yes (Other)
  Sender: FDA-Public Use
  Company Number: PT-BAYER-2015-396842

PATIENT
  Sex: Female

DRUGS (1)
  1. ULTRAVIST [Suspect]
     Active Substance: IOPROMIDE
     Dosage: 1 DF, QD
     Route: 042
     Dates: start: 20150728, end: 20150728

REACTIONS (2)
  - Sneezing [Unknown]
  - Throat tightness [Unknown]

NARRATIVE: CASE EVENT DATE: 20150728
